FAERS Safety Report 13107964 (Version 10)
Quarter: 2017Q4

REPORT INFORMATION
  Report Type: Spontaneous
  Country: JP (occurrence: JP)
  Receive Date: 20170112
  Receipt Date: 20171027
  Transmission Date: 20180320
  Serious: Yes (Hospitalization, Disabling)
  Sender: FDA-Public Use
  Company Number: JP-ROCHE-1878544

PATIENT
  Sex: Female
  Weight: 59.2 kg

DRUGS (12)
  1. XYZAL [Concomitant]
     Active Substance: LEVOCETIRIZINE DIHYDROCHLORIDE
     Indication: ASTHMA
     Dosage: 5 MG, QD
     Route: 048
  2. RINDERON V [Suspect]
     Active Substance: BETAMETHASONE VALERATE
     Route: 048
     Dates: start: 20170131, end: 20170206
  3. SPIRIVA [Concomitant]
     Active Substance: TIOTROPIUM BROMIDE MONOHYDRATE
     Indication: PRODUCT USED FOR UNKNOWN INDICATION
     Dosage: 2 OT, QD
     Route: 055
  4. XOLAIR [Suspect]
     Active Substance: OMALIZUMAB
     Indication: ASTHMA
     Route: 058
     Dates: start: 20170105, end: 20170105
  5. FLUTIFORM [Concomitant]
     Active Substance: FLUTICASONE PROPIONATE\FORMOTEROL FUMARATE
     Indication: PRODUCT USED FOR UNKNOWN INDICATION
     Dosage: 4 OT, BID
     Route: 055
  6. RINDERON V [Suspect]
     Active Substance: BETAMETHASONE VALERATE
     Route: 048
     Dates: start: 20170113, end: 20170113
  7. RINDERON V [Suspect]
     Active Substance: BETAMETHASONE VALERATE
     Dosage: PRN
     Route: 048
     Dates: start: 20170223
  8. THEO-DUR [Concomitant]
     Active Substance: THEOPHYLLINE ANHYDROUS
     Indication: PRODUCT USED FOR UNKNOWN INDICATION
     Dosage: UNK
     Route: 065
  9. BETAMETHASONE. [Concomitant]
     Active Substance: BETAMETHASONE
     Indication: ASTHMA
     Dosage: 1 MG, BID
     Route: 048
     Dates: start: 20161228, end: 20170105
  10. RINDERON V [Suspect]
     Active Substance: BETAMETHASONE VALERATE
     Indication: ANAPHYLACTIC REACTION
     Dosage: 8 MG Q6H
     Route: 048
     Dates: start: 20170106
  11. RINDERON V [Suspect]
     Active Substance: BETAMETHASONE VALERATE
     Dosage: PRN
     Route: 041
     Dates: start: 20170131, end: 20170222
  12. PRANLUKAST [Concomitant]
     Active Substance: PRANLUKAST
     Indication: ASTHMA
     Dosage: 225 MG, BID
     Route: 048

REACTIONS (7)
  - Myopathy [Not Recovered/Not Resolved]
  - Abdominal pain upper [Not Recovered/Not Resolved]
  - Anaphylactic reaction [Recovering/Resolving]
  - Asthma [Unknown]
  - Respiratory failure [Unknown]
  - Substance-induced psychotic disorder [Not Recovered/Not Resolved]
  - Pruritus allergic [Unknown]

NARRATIVE: CASE EVENT DATE: 20170105
